FAERS Safety Report 11692197 (Version 5)
Quarter: 2016Q1

REPORT INFORMATION
  Report Type: Spontaneous
  Country: US (occurrence: US)
  Receive Date: 20151103
  Receipt Date: 20160318
  Transmission Date: 20160525
  Serious: Yes (Hospitalization, Other)
  Sender: FDA-Public Use
  Company Number: US-ASTRAZENECA-2015SF03330

PATIENT
  Age: 59 Year
  Sex: Female
  Weight: 86.2 kg

DRUGS (35)
  1. SIMVASTATIN. [Concomitant]
     Active Substance: SIMVASTATIN
     Indication: BLOOD CHOLESTEROL INCREASED
     Dosage: DAILY
  2. KLONIPIN [Concomitant]
     Active Substance: CLONAZEPAM
     Indication: PAIN
  3. LUVOX [Concomitant]
     Active Substance: FLUVOXAMINE MALEATE
     Indication: NEURALGIA
  4. LUBRICANT EYE DROPS [Concomitant]
     Active Substance: POLYETHYLENE GLYCOL 400\PROPYLENE GLYCOL
     Indication: LACRIMATION INCREASED
     Dosage: FOUR TIMES A DAY
  5. PHAZYME [Concomitant]
     Active Substance: DIMETHICONE 410
  6. CLOTRIMAZOLE. [Concomitant]
     Active Substance: CLOTRIMAZOLE
     Indication: CANDIDA INFECTION
  7. TUDORZA PRESSAIR [Suspect]
     Active Substance: ACLIDINIUM BROMIDE
     Indication: EMPHYSEMA
     Route: 055
     Dates: start: 20151020
  8. BUDESONIDE. [Suspect]
     Active Substance: BUDESONIDE
     Indication: EMPHYSEMA
     Dosage: TWO TIMES A DAY
     Route: 055
  9. ALIGN [Concomitant]
     Active Substance: BIFIDOBACTERIUM LONGUM SUBSP. INFANTIS
     Indication: PROBIOTIC THERAPY
     Dosage: DAILY
  10. CENTRUM WOMENS [Concomitant]
     Indication: HYPOVITAMINOSIS
     Dosage: DAILY
  11. CALCIUM [Concomitant]
     Active Substance: CALCIUM
     Indication: OSTEOPOROSIS
  12. SENNA [Concomitant]
     Active Substance: SENNA LEAF\SENNOSIDES\SENNOSIDES A AND B
  13. KLONIPIN [Concomitant]
     Active Substance: CLONAZEPAM
     Indication: FEELING OF RELAXATION
  14. LOSARTAN. [Concomitant]
     Active Substance: LOSARTAN
     Indication: HYPERTENSION
  15. VITAMIN D [Concomitant]
     Active Substance: CHOLECALCIFEROL
     Indication: OSTEOPOROSIS
     Dosage: 2000
  16. CHLORTHALIDONE. [Concomitant]
     Active Substance: CHLORTHALIDONE
     Indication: BLOOD PRESSURE ABNORMAL
  17. MULTIVITAMIN [Concomitant]
     Active Substance: VITAMINS
  18. TUDORZA PRESSAIR [Suspect]
     Active Substance: ACLIDINIUM BROMIDE
     Indication: OBSTRUCTIVE AIRWAYS DISORDER
     Route: 055
     Dates: start: 20151020
  19. PROLIA [Concomitant]
     Active Substance: DENOSUMAB
     Indication: OSTEOARTHRITIS
  20. TIGAN [Concomitant]
     Active Substance: TRIMETHOBENZAMIDE HYDROCHLORIDE
     Indication: NAUSEA
  21. COLACE [Concomitant]
     Active Substance: DOCUSATE SODIUM
  22. OMEPRAZOLE. [Suspect]
     Active Substance: OMEPRAZOLE
     Indication: HIATUS HERNIA
     Route: 048
  23. ALBUTEROL. [Suspect]
     Active Substance: ALBUTEROL
     Route: 065
  24. ZIOPTAN [Concomitant]
     Active Substance: TAFLUPROST
     Indication: GLAUCOMA
     Dosage: AT NIGHT
  25. IRON [Concomitant]
     Active Substance: IRON
     Indication: ANAEMIA
  26. TUDORZA PRESSAIR [Suspect]
     Active Substance: ACLIDINIUM BROMIDE
     Indication: LUNG DISORDER
     Route: 055
     Dates: start: 20151020
  27. FENTANYL. [Concomitant]
     Active Substance: FENTANYL
     Indication: PAIN
  28. KLONIPIN [Concomitant]
     Active Substance: CLONAZEPAM
     Indication: NERVOUS SYSTEM DISORDER
  29. SYNTHROID [Concomitant]
     Active Substance: LEVOTHYROXINE SODIUM
     Indication: THYROID DISORDER
     Dosage: TAKES 50 MCG ONE DAY AND 75 MCG THE NEXT
  30. ZINC [Concomitant]
     Active Substance: ZINC\ZINC CHLORIDE
     Indication: GLOSSITIS
  31. CHLORTHALIDONE. [Concomitant]
     Active Substance: CHLORTHALIDONE
     Indication: DIURETIC THERAPY
  32. ONDANSETRON [Concomitant]
     Active Substance: ONDANSETRON
     Indication: VOMITING
  33. LUBRICANT EYE DROPS [Concomitant]
     Active Substance: POLYETHYLENE GLYCOL 400\PROPYLENE GLYCOL
     Indication: EYE LUBRICATION THERAPY
     Dosage: FOUR TIMES A DAY
  34. ASPIRIN. [Concomitant]
     Active Substance: ASPIRIN
     Indication: ILL-DEFINED DISORDER
  35. GLUCERNA DRINK [Concomitant]
     Indication: DIABETES MELLITUS
     Dosage: THREE TIMES A DAY

REACTIONS (39)
  - Seizure [Unknown]
  - Throat lesion [Unknown]
  - Osteoporosis [Unknown]
  - Injury associated with device [Unknown]
  - Lung disorder [Unknown]
  - Feeding disorder [Unknown]
  - Hernia [Not Recovered/Not Resolved]
  - Peripheral venous disease [Unknown]
  - Constipation [Unknown]
  - Fungal infection [Unknown]
  - Vomiting [Unknown]
  - Intentional product misuse [Unknown]
  - Product use issue [Unknown]
  - Adverse event [Unknown]
  - Dry mouth [Unknown]
  - Device difficult to use [Unknown]
  - Pain [Unknown]
  - Malnutrition [Unknown]
  - Malaise [Unknown]
  - Dyspnoea [Unknown]
  - Body height decreased [Not Recovered/Not Resolved]
  - Neuralgia [Unknown]
  - Cardiac disorder [Unknown]
  - Insomnia [Unknown]
  - Anxiety [Unknown]
  - Product quality issue [Unknown]
  - Spinal fracture [Unknown]
  - Accident at home [Unknown]
  - Ovarian cancer [Unknown]
  - Asthenia [Unknown]
  - Agitation [Unknown]
  - Neck pain [Unknown]
  - Back pain [Not Recovered/Not Resolved]
  - Tongue injury [Unknown]
  - Urinary bladder rupture [Unknown]
  - Emphysema [Unknown]
  - Malaise [Unknown]
  - Arthropathy [Unknown]
  - Off label use [Unknown]

NARRATIVE: CASE EVENT DATE: 2003
